FAERS Safety Report 13482611 (Version 6)
Quarter: 2017Q3

REPORT INFORMATION
  Report Type: Spontaneous
  Country: JP (occurrence: JP)
  Receive Date: 20170426
  Receipt Date: 20170927
  Transmission Date: 20171127
  Serious: Yes (Life-Threatening, Hospitalization, Other)
  Sender: FDA-Public Use
  Company Number: JP-ABBVIE-17K-087-1952392-00

PATIENT
  Age: 86 Year
  Sex: Female
  Weight: 36.9 kg

DRUGS (14)
  1. PREDONINE [Concomitant]
     Active Substance: PREDNISOLONE
     Indication: PRODUCT USED FOR UNKNOWN INDICATION
     Route: 048
     Dates: start: 20121013, end: 20121207
  2. BAKTAR [Suspect]
     Active Substance: SULFAMETHOXAZOLE\TRIMETHOPRIM
     Route: 065
     Dates: start: 20170508, end: 20170510
  3. PREDNISOLONE. [Concomitant]
     Active Substance: PREDNISOLONE
     Indication: PRODUCT USED FOR UNKNOWN INDICATION
     Route: 048
  4. RHEUMATREX [Suspect]
     Active Substance: METHOTREXATE SODIUM
     Indication: RHEUMATOID ARTHRITIS
     Route: 048
     Dates: start: 20131030, end: 201403
  5. PREDONINE [Concomitant]
     Active Substance: PREDNISOLONE
     Dosage: 5 MG AND 10 MG EACH TWICE DAILY
     Dates: start: 20121208, end: 20131220
  6. PREDNISOLONE. [Concomitant]
     Active Substance: PREDNISOLONE
     Dates: start: 20140821, end: 20160506
  7. HUMIRA [Suspect]
     Active Substance: ADALIMUMAB
     Indication: RHEUMATOID ARTHRITIS
     Route: 058
     Dates: start: 20140723, end: 20170417
  8. RHEUMATREX [Suspect]
     Active Substance: METHOTREXATE SODIUM
     Route: 048
     Dates: start: 201404, end: 201704
  9. PREDONINE [Concomitant]
     Active Substance: PREDNISOLONE
     Dates: start: 20131221, end: 20140328
  10. PREDONINE [Concomitant]
     Active Substance: PREDNISOLONE
     Dosage: 5 MG AND 10 MG EACH TWICE DAILY
     Dates: start: 20140329, end: 20140821
  11. BAKTAR [Suspect]
     Active Substance: SULFAMETHOXAZOLE\TRIMETHOPRIM
     Indication: PNEUMOCYSTIS JIROVECII PNEUMONIA
     Route: 065
     Dates: start: 20170503, end: 20170507
  12. PREDNISOLONE. [Concomitant]
     Active Substance: PREDNISOLONE
     Dates: start: 20111209, end: 20120914
  13. PREDNISOLONE. [Concomitant]
     Active Substance: PREDNISOLONE
     Dates: start: 20120915, end: 20121012
  14. PREDNISOLONE. [Concomitant]
     Active Substance: PREDNISOLONE
     Dates: start: 20160501, end: 20170421

REACTIONS (12)
  - C-reactive protein increased [Unknown]
  - Hyperkalaemia [Unknown]
  - Pleural effusion [Unknown]
  - Streptococcal bacteraemia [Unknown]
  - Petechiae [Unknown]
  - Bone marrow failure [Unknown]
  - Pneumocystis jirovecii pneumonia [Recovering/Resolving]
  - Hyponatraemia [Unknown]
  - Gastrointestinal disorder [Unknown]
  - Pancytopenia [Recovered/Resolved]
  - Decreased appetite [Unknown]
  - Pneumonia bacterial [Recovering/Resolving]

NARRATIVE: CASE EVENT DATE: 20170417
